FAERS Safety Report 11788783 (Version 1)
Quarter: 2015Q4

REPORT INFORMATION
  Report Type: Spontaneous
  Country: US (occurrence: None)
  Receive Date: 20151130
  Receipt Date: 20151130
  Transmission Date: 20160305
  Serious: Yes (Life-Threatening, Other)
  Sender: FDA-Public Use
  Company Number: None

PATIENT
  Age: 5 Year
  Sex: Male
  Weight: 26.31 kg

DRUGS (5)
  1. QVAR [Concomitant]
     Active Substance: BECLOMETHASONE DIPROPIONATE
  2. ALBUTEROL. [Concomitant]
     Active Substance: ALBUTEROL
  3. VITAMIN GUMMIES [Concomitant]
  4. MONTELUKAST [Suspect]
     Active Substance: MONTELUKAST SODIUM
     Indication: ASTHMA
     Dosage: 1 PILL
     Route: 048
     Dates: start: 20150701, end: 20151109
  5. TYLENOL [Concomitant]
     Active Substance: ACETAMINOPHEN

REACTIONS (11)
  - Depressed mood [None]
  - Aggression [None]
  - Nightmare [None]
  - Thinking abnormal [None]
  - Pain in extremity [None]
  - Social avoidant behaviour [None]
  - Sleep terror [None]
  - Hallucination, auditory [None]
  - Screaming [None]
  - Crying [None]
  - Sleep disorder [None]

NARRATIVE: CASE EVENT DATE: 20151006
